FAERS Safety Report 23897181 (Version 1)
Quarter: 2024Q2

REPORT INFORMATION
  Report Type: Spontaneous
  Country: US (occurrence: US)
  Receive Date: 20240524
  Receipt Date: 20240524
  Transmission Date: 20240716
  Serious: Yes (Hospitalization)
  Sender: FDA-Public Use
  Company Number: US-Calliditas-2024CAL00813

PATIENT
  Age: 59 Year
  Sex: Female
  Weight: 70 kg

DRUGS (1)
  1. TARPEYO [Suspect]
     Active Substance: BUDESONIDE
     Indication: IgA nephropathy
     Route: 048
     Dates: start: 20220927, end: 20240401

REACTIONS (6)
  - Urinary tract infection [Unknown]
  - Vomiting [Unknown]
  - Dehydration [Unknown]
  - Decreased appetite [Unknown]
  - Inappropriate schedule of product discontinuation [Unknown]
  - Withdrawal syndrome [Unknown]
